FAERS Safety Report 7873333-4 (Version None)
Quarter: 2011Q4

REPORT INFORMATION
  Report Type: 
  Country: None (occurrence: None)
  Receive Date: 20111030
  Receipt Date: 20110503
  Transmission Date: 20120403
  Serious: No
  Sender: FDA-Public Use
  Company Number: US-AMGEN-USASP2011022934

PATIENT
  Sex: Female

DRUGS (6)
  1. DIAZEPAM [Concomitant]
     Indication: PSORIATIC ARTHROPATHY
     Dosage: UNK
  2. ENBREL [Suspect]
     Indication: PSORIATIC ARTHROPATHY
     Dosage: 50 MG, QWK
     Dates: start: 20101101
  3. DIAZEPAM [Concomitant]
     Indication: PSORIASIS
  4. METHOTREXATE [Concomitant]
     Indication: PSORIASIS
  5. ENBREL [Suspect]
     Indication: PSORIASIS
  6. METHOTREXATE [Concomitant]
     Indication: PSORIATIC ARTHROPATHY
     Dosage: 1 MG, QWK
     Dates: start: 20101001

REACTIONS (6)
  - INJECTION SITE PAIN [None]
  - INJECTION SITE ERYTHEMA [None]
  - DRUG EFFECT DECREASED [None]
  - PSORIATIC ARTHROPATHY [None]
  - INJECTION SITE RASH [None]
  - INJECTION SITE PRURITUS [None]
